FAERS Safety Report 6600949-5 (Version None)
Quarter: 2010Q1

REPORT INFORMATION
  Report Type: 
  Country: None (occurrence: None)
  Receive Date: 20100225
  Receipt Date: 20100217
  Transmission Date: 20100710
  Serious: Yes (Other)
  Sender: FDA-Public Use
  Company Number: CA-JNJFOC-20100208118

PATIENT
  Sex: Male
  Weight: 80 kg

DRUGS (4)
  1. REMICADE [Suspect]
     Indication: CROHN'S DISEASE
     Route: 042
  2. REMICADE [Suspect]
     Dosage: 2ND LOADING DOSE
     Route: 042
  3. REMICADE [Suspect]
     Dosage: LOADING DOSES 5 YEARS AGO
     Route: 042
  4. IMURAN [Concomitant]
     Dosage: 2 TABS DAILY

REACTIONS (5)
  - DYSPNOEA [None]
  - FLUSHING [None]
  - HYPERHIDROSIS [None]
  - INFUSION RELATED REACTION [None]
  - SURGERY [None]
